FAERS Safety Report 23952069 (Version 1)
Quarter: 2024Q2

REPORT INFORMATION
  Report Type: Spontaneous
  Country: US (occurrence: US)
  Receive Date: 20240607
  Receipt Date: 20240607
  Transmission Date: 20240715
  Serious: No
  Sender: FDA-Public Use
  Company Number: US-TAKEDA-2024TUS056979

PATIENT
  Sex: Female
  Weight: 104 kg

DRUGS (4)
  1. TRINTELLIX [Suspect]
     Active Substance: VORTIOXETINE HYDROBROMIDE
     Indication: Major depression
     Dosage: 20 MILLIGRAM, QD
     Route: 065
     Dates: start: 202403
  2. TRINTELLIX [Suspect]
     Active Substance: VORTIOXETINE HYDROBROMIDE
     Indication: Anxiety
  3. PREDNISONE [Concomitant]
     Active Substance: PREDNISONE
     Indication: Sinusitis
     Dosage: UNK
  4. AMOXICILLIN [Concomitant]
     Active Substance: AMOXICILLIN
     Indication: Sinusitis
     Dosage: UNK

REACTIONS (2)
  - Blood pressure increased [Unknown]
  - Headache [Unknown]
